FAERS Safety Report 13454926 (Version 1)
Quarter: 2017Q2

REPORT INFORMATION
  Report Type: Spontaneous
  Country: GB (occurrence: GB)
  Receive Date: 20170419
  Receipt Date: 20170419
  Transmission Date: 20170830
  Serious: Yes (Other)
  Sender: FDA-Public Use
  Company Number: GB-TEVA-758808ACC

PATIENT
  Age: 53 Year
  Sex: Male
  Weight: 65 kg

DRUGS (3)
  1. ARIPIPRAZOLE. [Concomitant]
     Active Substance: ARIPIPRAZOLE
  2. BECONASE AQ [Concomitant]
     Active Substance: BECLOMETHASONE DIPROPIONATE MONOHYDRATE
  3. ACTAVIS UK TRIMETHOPRIM [Suspect]
     Active Substance: TRIMETHOPRIM
     Indication: ORAL CANDIDIASIS
     Route: 048
     Dates: start: 20170320, end: 20170326

REACTIONS (5)
  - Malaise [Recovered/Resolved with Sequelae]
  - Sputum discoloured [Recovered/Resolved with Sequelae]
  - Proctalgia [Recovered/Resolved with Sequelae]
  - Sinus pain [Recovered/Resolved with Sequelae]
  - Haemoptysis [Recovered/Resolved with Sequelae]

NARRATIVE: CASE EVENT DATE: 20170321
